FAERS Safety Report 5057612-4 (Version None)
Quarter: 2006Q3

REPORT INFORMATION
  Report Type: 
  Country: None (occurrence: None)
  Receive Date: 20060721
  Receipt Date: 20051221
  Transmission Date: 20061208
  Serious: No
  Sender: FDA-Public Use
  Company Number: US-GLAXOSMITHKLINE-A0586653A

PATIENT
  Age: 64 Year
  Sex: Female

DRUGS (12)
  1. AVANDIA [Suspect]
     Dosage: 4MG TWICE PER DAY
     Route: 048
     Dates: start: 20050401, end: 20050901
  2. DIOVAN [Concomitant]
  3. PRANDIN [Concomitant]
  4. PROCARDIA [Concomitant]
  5. TOPROL-XL [Concomitant]
  6. PRAVACHOL [Concomitant]
  7. NEXIUM [Concomitant]
  8. SYNTHROID [Concomitant]
  9. CYMBALTA [Concomitant]
     Route: 065
  10. WELLBUTRIN [Concomitant]
  11. UNKNOWN MEDICATION [Concomitant]
     Route: 065
  12. METFORMIN [Concomitant]

REACTIONS (1)
  - JOINT SWELLING [None]
